FAERS Safety Report 10150468 (Version 2)
Quarter: 2014Q2

REPORT INFORMATION
  Report Type: Spontaneous
  Country: US (occurrence: US)
  Receive Date: 20140502
  Receipt Date: 20140604
  Transmission Date: 20141212
  Serious: No
  Sender: FDA-Public Use
  Company Number: US-009507513-1405USA000447

PATIENT
  Age: 38 Year
  Sex: Female
  Weight: 54.42 kg

DRUGS (3)
  1. NEXPLANON [Suspect]
     Indication: CONTRACEPTION
     Dosage: SINGLE ROD
     Route: 059
     Dates: start: 201312
  2. ZONEGRAN [Concomitant]
  3. CLONIDINE [Concomitant]

REACTIONS (3)
  - Intraocular pressure test [Recovered/Resolved]
  - Dyspnoea [Recovered/Resolved]
  - Eye pain [Recovered/Resolved]
